FAERS Safety Report 16534382 (Version 1)
Quarter: 2019Q3

REPORT INFORMATION
  Report Type: Spontaneous
  Country: US (occurrence: US)
  Receive Date: 20190704
  Receipt Date: 20190704
  Transmission Date: 20191004
  Serious: Yes (Other)
  Sender: FDA-Public Use
  Company Number: None

PATIENT
  Age: 19 Year
  Sex: Male
  Weight: 58 kg

DRUGS (4)
  1. ZOLFRESH [Concomitant]
     Active Substance: ZOLPIDEM TARTRATE
  2. FLUVOXINE CR [Concomitant]
  3. VIRADAY [Suspect]
     Active Substance: EFAVIRENZ\EMTRICITABINE\TENOFOVIR DISOPROXIL FUMARATE
     Indication: ANTIRETROVIRAL THERAPY
  4. SEVEN SEAS [Concomitant]

REACTIONS (2)
  - Dizziness [None]
  - Tachycardia [None]

NARRATIVE: CASE EVENT DATE: 20190704
